FAERS Safety Report 21322749 (Version 1)
Quarter: 2022Q3

REPORT INFORMATION
  Report Type: Spontaneous
  Country: FR (occurrence: FR)
  Receive Date: 20220912
  Receipt Date: 20220912
  Transmission Date: 20221026
  Serious: Yes (Hospitalization)
  Sender: FDA-Public Use
  Company Number: None

PATIENT
  Age: 50 Year
  Sex: Male

DRUGS (2)
  1. TEGRETOL [Suspect]
     Active Substance: CARBAMAZEPINE
     Indication: Headache
     Dosage: (200 MG 2 FOIS PAR JOUR)
     Route: 048
     Dates: start: 202207
  2. CELEBREX [Suspect]
     Active Substance: CELECOXIB
     Indication: Headache
     Dosage: (200 MG 1 FOIS PAR JOUR)
     Route: 048
     Dates: start: 202207

REACTIONS (1)
  - Stevens-Johnson syndrome [Recovering/Resolving]

NARRATIVE: CASE EVENT DATE: 20220801
